FAERS Safety Report 10108680 (Version 1)
Quarter: 2014Q2

REPORT INFORMATION
  Report Type: Report from Study
  Country: CA (occurrence: CA)
  Receive Date: 20140425
  Receipt Date: 20140425
  Transmission Date: 20141212
  Serious: Yes (Other)
  Sender: FDA-Public Use
  Company Number: CA-ROCHE-1389865

PATIENT
  Sex: Male

DRUGS (7)
  1. RITUXAN [Suspect]
     Indication: RHEUMATOID ARTHRITIS
     Dosage: FREQUENCY:  DAY 1, 15
     Route: 042
     Dates: start: 20120510
  2. RITUXAN [Suspect]
     Dosage: FREQUENCY:  DAY 1, 15
     Route: 042
     Dates: start: 20130417
  3. ADALAT [Concomitant]
  4. SYNTHROID [Concomitant]
  5. CELEBREX [Concomitant]
  6. METHOTREXATE [Concomitant]
  7. COD LIVER OIL [Concomitant]
     Route: 065

REACTIONS (1)
  - Hypothyroidism [Unknown]
